FAERS Safety Report 6834326-9 (Version None)
Quarter: 2010Q3

REPORT INFORMATION
  Report Type: 
  Country: None (occurrence: None)
  Receive Date: 20100712
  Receipt Date: 20070424
  Transmission Date: 20110219
  Serious: No
  Sender: FDA-Public Use
  Company Number: US-PFIZER INC-2007034681

PATIENT
  Age: 67 Year
  Sex: Female

DRUGS (2)
  1. CHANTIX [Suspect]
     Indication: SMOKING CESSATION THERAPY
     Dates: start: 20061101, end: 20070101
  2. AMLODIPINE [Concomitant]

REACTIONS (4)
  - CONSTIPATION [None]
  - GINGIVAL BLEEDING [None]
  - GINGIVAL SWELLING [None]
  - INSOMNIA [None]
